FAERS Safety Report 11197951 (Version 1)
Quarter: 2015Q2

REPORT INFORMATION
  Report Type: Spontaneous
  Country: US (occurrence: US)
  Receive Date: 20150617
  Receipt Date: 20150617
  Transmission Date: 20150821
  Serious: No
  Sender: FDA-Public Use
  Company Number: US-GALDERMA-US15001035

PATIENT
  Age: 36 Year
  Sex: Female

DRUGS (6)
  1. OIL OF OLAY SENSITIVE SKIN CLEANSER [Concomitant]
     Indication: THERAPEUTIC SKIN CARE TOPICAL
     Route: 061
  2. UNKNOWN TONER [Concomitant]
     Route: 061
     Dates: end: 2014
  3. MIRVASO [Suspect]
     Active Substance: BRIMONIDINE TARTRATE
     Indication: ROSACEA
  4. MIRVASO [Suspect]
     Active Substance: BRIMONIDINE TARTRATE
     Indication: RASH MACULAR
     Route: 061
     Dates: start: 20140617, end: 20140620
  5. NEUTROGENA MOISTURIZER [Concomitant]
     Indication: DRY SKIN PROPHYLAXIS
     Route: 061
  6. ALMAY LIQUID FOUNDATION [Concomitant]
     Route: 061

REACTIONS (10)
  - Rash [Recovered/Resolved]
  - Abnormal loss of weight [Recovered/Resolved]
  - Pain of skin [Recovered/Resolved]
  - Drug ineffective [Recovered/Resolved]
  - Erythema [Recovered/Resolved]
  - Flushing [Not Recovered/Not Resolved]
  - Rash papular [Recovered/Resolved]
  - Emotional distress [Recovered/Resolved]
  - Condition aggravated [Recovered/Resolved]
  - Chemical burn of skin [Recovered/Resolved]

NARRATIVE: CASE EVENT DATE: 2014
